FAERS Safety Report 5361690-2 (Version None)
Quarter: 2007Q2

REPORT INFORMATION
  Report Type: 
  Country: None (occurrence: None)
  Receive Date: 20070619
  Receipt Date: 20070611
  Transmission Date: 20071010
  Serious: Yes (Hospitalization, Other)
  Sender: FDA-Public Use
  Company Number: US-BAYER-200410784BCC

PATIENT
  Age: 54 Year
  Sex: Male
  Weight: 113 kg

DRUGS (5)
  1. ALEVE [Suspect]
     Indication: BACK PAIN
     Dosage: TOTAL DAILY DOSE: 440 MG  UNIT DOSE: 220 MG
     Route: 048
  2. LISINOPRIL [Concomitant]
     Route: 048
  3. NORVASC [Concomitant]
     Route: 048
  4. AVANDIA [Concomitant]
     Route: 048
  5. METFORMIN HCL [Concomitant]
     Route: 048

REACTIONS (18)
  - AMNESIA [None]
  - ASTHENIA [None]
  - BLOOD PRESSURE DECREASED [None]
  - CARDIAC FAILURE [None]
  - CIRCULATORY COLLAPSE [None]
  - DISTURBANCE IN ATTENTION [None]
  - DUODENAL ULCER HAEMORRHAGE [None]
  - FATIGUE [None]
  - GASTRECTOMY [None]
  - GASTRIC HAEMORRHAGE [None]
  - HAEMATOCHEZIA [None]
  - HERNIA [None]
  - INTESTINAL OBSTRUCTION [None]
  - MEMORY IMPAIRMENT [None]
  - ORGAN FAILURE [None]
  - PNEUMONIA [None]
  - STAPHYLOCOCCAL INFECTION [None]
  - THROMBOSIS [None]
